FAERS Safety Report 4856233-3 (Version None)
Quarter: 2005Q4

REPORT INFORMATION
  Report Type: 
  Country: None (occurrence: None)
  Receive Date: 20051215
  Receipt Date: 20051215
  Transmission Date: 20060501
  Serious: Yes (Life-Threatening)
  Sender: FDA-Public Use
  Company Number: None

PATIENT
  Age: 35 Year
  Sex: Female
  Weight: 59.9 kg

DRUGS (1)
  1. LEXAPRO [Suspect]
     Indication: DEPRESSION
     Dosage: 10 MG  DAILY  PO
     Route: 048
     Dates: start: 20050701, end: 20051025

REACTIONS (12)
  - ABDOMINAL TENDERNESS [None]
  - CONDITION AGGRAVATED [None]
  - DYSGEUSIA [None]
  - FATIGUE [None]
  - FLATULENCE [None]
  - HEPATIC ENZYME INCREASED [None]
  - HEPATOTOXICITY [None]
  - IMPAIRED WORK ABILITY [None]
  - INCREASED TENDENCY TO BRUISE [None]
  - INFECTIOUS MONONUCLEOSIS [None]
  - NAUSEA [None]
  - PRURITUS [None]
